FAERS Safety Report 15945127 (Version 2)
Quarter: 2019Q1

REPORT INFORMATION
  Report Type: Report from Study
  Country: IN (occurrence: IN)
  Receive Date: 20190211
  Receipt Date: 20190220
  Transmission Date: 20190417
  Serious: Yes (Death)
  Sender: FDA-Public Use
  Company Number: IN-SA-2019SA032800

PATIENT
  Age: 65 Year
  Sex: Male
  Weight: 60 kg

DRUGS (1)
  1. INSULIN GLARGINE [Suspect]
     Active Substance: INSULIN GLARGINE
     Indication: DIABETES MELLITUS
     Dosage: 18 U, QD
     Route: 058
     Dates: start: 20180926, end: 20181212

REACTIONS (4)
  - Blood glucose increased [Fatal]
  - Renal disorder [Fatal]
  - Hyperglycaemia [Not Recovered/Not Resolved]
  - Dengue fever [Fatal]
